FAERS Safety Report 23955880 (Version 1)
Quarter: 2024Q2

REPORT INFORMATION
  Report Type: Spontaneous
  Country: NL (occurrence: NL)
  Receive Date: 20240610
  Receipt Date: 20240610
  Transmission Date: 20240716
  Serious: Yes (Other)
  Sender: FDA-Public Use
  Company Number: NL-AMGEN-NLDSP2024109002

PATIENT

DRUGS (8)
  1. PANITUMUMAB [Suspect]
     Active Substance: PANITUMUMAB
     Indication: Gastrooesophageal cancer
     Dosage: 6 MILLIGRAM/KILOGRAM
     Route: 065
  2. CARBOPLATIN [Concomitant]
     Active Substance: CARBOPLATIN
     Indication: Gastrooesophageal cancer
     Dosage: UNK UNK, QWK
     Route: 065
  3. PACLITAXEL [Concomitant]
     Active Substance: PACLITAXEL
     Indication: Gastrooesophageal cancer
     Dosage: 50 MILLIGRAM/SQ. METER
     Route: 065
  4. EPIRUBICIN [Concomitant]
     Active Substance: EPIRUBICIN
     Indication: Gastrooesophageal cancer
     Dosage: UNK
     Route: 065
  5. CISPLATIN [Concomitant]
     Active Substance: CISPLATIN
     Indication: Gastrooesophageal cancer
     Dosage: UNK
     Route: 065
  6. CAPECITABINE [Concomitant]
     Active Substance: CAPECITABINE
     Indication: Gastrooesophageal cancer
     Dosage: UNK
     Route: 065
  7. OXALIPLATIN [Concomitant]
     Active Substance: OXALIPLATIN
     Indication: Gastrooesophageal cancer
     Dosage: UNK
     Route: 065
  8. ETOPOSIDE [Concomitant]
     Active Substance: ETOPOSIDE
     Indication: Gastrooesophageal cancer
     Dosage: UNK
     Route: 065

REACTIONS (2)
  - Gastrooesophageal cancer recurrent [Unknown]
  - Therapy partial responder [Unknown]
